FAERS Safety Report 9315856 (Version 1)
Quarter: 2013Q2

REPORT INFORMATION
  Report Type: Spontaneous
  Country: BR (occurrence: BR)
  Receive Date: 20130530
  Receipt Date: 20130530
  Transmission Date: 20140414
  Serious: Yes (Hospitalization)
  Sender: FDA-Public Use
  Company Number: BR-009507513-1305BRA015768

PATIENT
  Age: 73 Year
  Sex: Female
  Weight: 60 kg

DRUGS (3)
  1. TIMOPTOL [Suspect]
     Indication: INTRAOCULAR PRESSURE INCREASED
     Dosage: ONE DROP EACH EYE, Q12H
     Route: 047
     Dates: start: 2005
  2. TIMOPTOL [Suspect]
     Dosage: UNK, Q12H
     Route: 047
     Dates: start: 20130523
  3. CARDIZEM [Concomitant]
     Indication: HYPERTENSION
     Dosage: UNK, QPM

REACTIONS (15)
  - Cyst removal [Unknown]
  - Dental prosthesis placement [Unknown]
  - Hysterectomy [Unknown]
  - Plastic surgery [Unknown]
  - Lacrimation decreased [Not Recovered/Not Resolved]
  - Gastrointestinal pain [Unknown]
  - Bladder disorder [Unknown]
  - Ocular hyperaemia [Recovering/Resolving]
  - Somnolence [Not Recovered/Not Resolved]
  - Dry eye [Not Recovered/Not Resolved]
  - Depression [Not Recovered/Not Resolved]
  - Eye irritation [Recovered/Resolved]
  - Headache [Unknown]
  - Product quality issue [Unknown]
  - Drug administration error [Unknown]
